FAERS Safety Report 24258157 (Version 1)
Quarter: 2024Q3

REPORT INFORMATION
  Report Type: Spontaneous
  Country: US (occurrence: US)
  Receive Date: 20240828
  Receipt Date: 20240828
  Transmission Date: 20241017
  Serious: Yes (Hospitalization, Other)
  Sender: SANOFI AVENTIS
  Company Number: US-SA-SAC20240719000242

PATIENT
  Age: 76 Year
  Sex: Male

DRUGS (3)
  1. CERDELGA [Suspect]
     Active Substance: ELIGLUSTAT
     Indication: Gaucher^s disease
     Dosage: 84 MG, BID
     Route: 048
     Dates: start: 20240301, end: 20240701
  2. CERDELGA [Suspect]
     Active Substance: ELIGLUSTAT
     Dosage: 84 MG, BID
     Route: 048
     Dates: start: 202407
  3. OTEZLA [Concomitant]
     Active Substance: APREMILAST
     Dosage: UNK

REACTIONS (2)
  - Coronary artery disease [Unknown]
  - Stenosis [Unknown]

NARRATIVE: CASE EVENT DATE: 20240101
